FAERS Safety Report 6717681-X (Version None)
Quarter: 2010Q2

REPORT INFORMATION
  Report Type: 
  Country: None (occurrence: None)
  Receive Date: 20100503
  Receipt Date: 20100420
  Transmission Date: 20101027
  Serious: Yes (Other)
  Sender: FDA-Public Use
  Company Number: 7001865

PATIENT
  Age: 47 Year
  Sex: Male

DRUGS (1)
  1. REBIF [Suspect]
     Indication: MULTIPLE SCLEROSIS
     Dosage: 44MCG, 3 IN1 WK, SUBCUTANEOUS
     Route: 058
     Dates: start: 20051013

REACTIONS (2)
  - ABASIA [None]
  - LEUKAEMIA [None]
